FAERS Safety Report 19175098 (Version 2)
Quarter: 2022Q4

REPORT INFORMATION
  Report Type: Report from Study
  Country: FR (occurrence: None)
  Receive Date: 20210423
  Receipt Date: 20221129
  Transmission Date: 20230112
  Serious: Yes (Hospitalization)
  Sender: FDA-Public Use
  Company Number: FR-MERCK HEALTHCARE KGAA-9232850

PATIENT
  Age: 73 Year
  Sex: Male
  Weight: 59 kg

DRUGS (5)
  1. AVELUMAB [Suspect]
     Active Substance: AVELUMAB
     Indication: Gastrointestinal carcinoma
     Route: 042
     Dates: start: 20210309
  2. AVELUMAB [Suspect]
     Active Substance: AVELUMAB
     Route: 042
     Dates: start: 20210406
  3. REGORAFENIB [Suspect]
     Active Substance: REGORAFENIB
     Indication: Gastrointestinal carcinoma
     Route: 048
     Dates: start: 20210223
  4. REGORAFENIB [Suspect]
     Active Substance: REGORAFENIB
     Route: 048
     Dates: start: 20210406
  5. METOCLOPRAMIDE [Concomitant]
     Active Substance: METOCLOPRAMIDE
     Indication: Decreased appetite
     Dates: start: 2020

REACTIONS (1)
  - Infusion related reaction [Recovered/Resolved]

NARRATIVE: CASE EVENT DATE: 20210406
